FAERS Safety Report 18500041 (Version 1)
Quarter: 2020Q4

REPORT INFORMATION
  Report Type: Spontaneous
  Country: JP (occurrence: JP)
  Receive Date: 20201113
  Receipt Date: 20201113
  Transmission Date: 20210114
  Serious: Yes (Other)
  Sender: FDA-Public Use
  Company Number: JP-SUN PHARMACEUTICAL INDUSTRIES LTD-2020R1-267611

PATIENT
  Age: 38 Year
  Sex: Female
  Weight: 52 kg

DRUGS (3)
  1. EBASTINE [Suspect]
     Active Substance: EBASTINE
     Indication: PRURITUS
  2. ASPIRIN. [Suspect]
     Active Substance: ASPIRIN
     Indication: HABITUAL ABORTION
     Dosage: UNK
     Route: 065
  3. EBASTINE [Suspect]
     Active Substance: EBASTINE
     Indication: HYPERSENSITIVITY
     Dosage: UNK
     Route: 065

REACTIONS (2)
  - Live birth [Unknown]
  - Exposure during pregnancy [Unknown]
